FAERS Safety Report 8841019 (Version 1)
Quarter: 2012Q4

REPORT INFORMATION
  Report Type: 
  Country: US (occurrence: US)
  Receive Date: 20121015
  Receipt Date: 20121015
  Transmission Date: 20130627
  Serious: Yes (Hospitalization)
  Sender: FDA-Public Use
  Company Number: US-ROCHE-1138922

PATIENT
  Sex: Male
  Weight: 54.2 kg

DRUGS (4)
  1. PROTROPIN [Suspect]
     Indication: DWARFISM
     Route: 058
     Dates: start: 199407
  2. RITALIN [Concomitant]
     Route: 065
  3. RITALIN [Concomitant]
     Route: 065
  4. RISPERDAL [Concomitant]

REACTIONS (2)
  - Mental disorder [Unknown]
  - Drug dose omission [Unknown]
